FAERS Safety Report 7309207-7 (Version None)
Quarter: 2011Q1

REPORT INFORMATION
  Report Type: 
  Country: None (occurrence: None)
  Receive Date: 20110223
  Receipt Date: 20110125
  Transmission Date: 20110831
  Serious: No
  Sender: FDA-Public Use
  Company Number: US-BAYER-2011-012156

PATIENT
  Sex: Female
  Weight: 91 kg

DRUGS (4)
  1. UNCODEABLE ^UNCLASSIFIABLE^ [Concomitant]
     Indication: PREMENSTRUAL SYNDROME
  2. ALEVE (CAPLET) [Suspect]
     Indication: HEADACHE
     Dosage: 880 MG, PRN
  3. ALEVE (CAPLET) [Suspect]
     Indication: PAIN IN EXTREMITY
  4. ALEVE (CAPLET) [Suspect]

REACTIONS (2)
  - PAIN IN EXTREMITY [None]
  - HEADACHE [None]
